FAERS Safety Report 12073005 (Version 1)
Quarter: 2016Q1

REPORT INFORMATION
  Report Type: Report from Study
  Country: HN (occurrence: HN)
  Receive Date: 20160212
  Receipt Date: 20160212
  Transmission Date: 20160526
  Serious: Yes (Death)
  Sender: FDA-Public Use
  Company Number: HN-ASTRAZENECA-2016SE13545

PATIENT
  Age: 69 Year
  Sex: Male

DRUGS (1)
  1. CRESTOR [Suspect]
     Active Substance: ROSUVASTATIN CALCIUM
     Route: 048
     Dates: start: 20130904

REACTIONS (1)
  - Death [Fatal]
